FAERS Safety Report 24430152 (Version 1)
Quarter: 2024Q4

REPORT INFORMATION
  Report Type: Spontaneous
  Country: US (occurrence: US)
  Receive Date: 20241013
  Receipt Date: 20241013
  Transmission Date: 20250114
  Serious: Yes (Death)
  Sender: DR REDDYS
  Company Number: US-DRL-USA-SPO/USA/24/0014832

PATIENT
  Age: 77 Year
  Sex: Female

DRUGS (1)
  1. CLOZAPINE [Suspect]
     Active Substance: CLOZAPINE
     Indication: Parkinson^s disease
     Dosage: ONCE A DAY
     Route: 065
     Dates: start: 20240522

REACTIONS (1)
  - Death [Fatal]

NARRATIVE: CASE EVENT DATE: 20240920
